FAERS Safety Report 13703319 (Version 2)
Quarter: 2018Q1

REPORT INFORMATION
  Report Type: Spontaneous
  Country: US (occurrence: US)
  Receive Date: 20170629
  Receipt Date: 20180123
  Transmission Date: 20180508
  Serious: Yes (Other)
  Sender: FDA-Public Use
  Company Number: US-ASTELLAS-2017US025034

PATIENT
  Sex: Male

DRUGS (2)
  1. XTANDI [Suspect]
     Active Substance: ENZALUTAMIDE
     Dosage: 120 MG (3X40MG), ONCE DAILY
     Route: 048
  2. XTANDI [Suspect]
     Active Substance: ENZALUTAMIDE
     Indication: PROSTATE CANCER
     Dosage: 160 MG (4X40 MG), ONCE DAILY
     Route: 048

REACTIONS (8)
  - Renal impairment [Unknown]
  - Decreased appetite [Unknown]
  - Hot flush [Unknown]
  - Abdominal discomfort [Unknown]
  - Nausea [Unknown]
  - Hypophagia [Unknown]
  - Weight decreased [Unknown]
  - Diarrhoea [Unknown]
